FAERS Safety Report 4588188-3 (Version None)
Quarter: 2005Q1

REPORT INFORMATION
  Report Type: 
  Country: None (occurrence: None)
  Receive Date: 20050221
  Receipt Date: 20050207
  Transmission Date: 20050727
  Serious: Yes (Hospitalization)
  Sender: FDA-Public Use
  Company Number: FR-GLAXOSMITHKLINE-B0369955A

PATIENT
  Age: 82 Year
  Sex: Female

DRUGS (11)
  1. DEROXAT [Suspect]
     Dosage: 10MG PER DAY
     Route: 048
     Dates: end: 20050106
  2. DICLOFENAC [Suspect]
     Dosage: 200MG PER DAY
     Route: 048
     Dates: start: 20041231, end: 20050106
  3. MUCOMYST [Suspect]
     Route: 048
     Dates: start: 20041231, end: 20050106
  4. PYOSTACINE [Suspect]
     Dosage: 2000MG PER DAY
     Route: 048
     Dates: start: 20041231, end: 20050106
  5. COZAAR [Concomitant]
  6. AERIUS [Concomitant]
  7. CACIT [Concomitant]
  8. LEXOMIL [Concomitant]
  9. AMLOR [Concomitant]
  10. CERVOXAN [Concomitant]
  11. DOLIPRANE [Concomitant]

REACTIONS (2)
  - RASH [None]
  - RENAL FAILURE ACUTE [None]
